FAERS Safety Report 11848992 (Version 7)
Quarter: 2017Q1

REPORT INFORMATION
  Report Type: Spontaneous
  Country: US (occurrence: US)
  Receive Date: 20151218
  Receipt Date: 20170320
  Transmission Date: 20170428
  Serious: Yes (Congenital Anomaly, Other)
  Sender: FDA-Public Use
  Company Number: PHEH2015US026285

PATIENT
  Sex: Female

DRUGS (2)
  1. ZOFRAN [Suspect]
     Active Substance: ONDANSETRON HYDROCHLORIDE
     Indication: FOETAL EXPOSURE DURING PREGNANCY
     Route: 064
  2. ZOFRAN [Suspect]
     Active Substance: ONDANSETRON HYDROCHLORIDE
     Indication: FOETAL EXPOSURE DURING PREGNANCY
     Route: 064

REACTIONS (22)
  - Heart disease congenital [Unknown]
  - Foetal exposure during pregnancy [Unknown]
  - Neonatal pneumonia [Unknown]
  - Congenital pulmonary artery anomaly [Unknown]
  - Ear pain [Unknown]
  - Teething [Unknown]
  - Emotional distress [Unknown]
  - Gastroenteritis viral [Unknown]
  - Congenital anomaly [Unknown]
  - Atrial septal defect [Unknown]
  - Congenital pulmonary valve disorder [Unknown]
  - Injury [Unknown]
  - Congenital mitral valve incompetence [Unknown]
  - Cardiac murmur functional [Unknown]
  - Pain [Unknown]
  - Anxiety [Unknown]
  - Anhedonia [Unknown]
  - Otitis media [Unknown]
  - Acute sinusitis [Unknown]
  - Pulmonary valve stenosis congenital [Unknown]
  - Bronchitis [Unknown]
  - Dehydration [Unknown]
